FAERS Safety Report 14083331 (Version 2)
Quarter: 2017Q4

REPORT INFORMATION
  Report Type: Spontaneous
  Country: US (occurrence: US)
  Receive Date: 20171013
  Receipt Date: 20171103
  Transmission Date: 20180321
  Serious: Yes (Other)
  Sender: FDA-Public Use
  Company Number: US-ELI_LILLY_AND_COMPANY-US201710002909

PATIENT
  Sex: Male
  Weight: 100 kg

DRUGS (1)
  1. TALTZ [Suspect]
     Active Substance: IXEKIZUMAB
     Indication: PSORIASIS
     Dosage: 80MG, EVERY 4 WEEKS
     Route: 058
     Dates: start: 201611, end: 201709

REACTIONS (1)
  - Cutaneous lupus erythematosus [Unknown]
